FAERS Safety Report 8000175-1 (Version None)
Quarter: 2011Q4

REPORT INFORMATION
  Report Type: 
  Country: None (occurrence: None)
  Receive Date: 20111220
  Receipt Date: 20111220
  Transmission Date: 20120403
  Serious: Yes (Hospitalization)
  Sender: FDA-Public Use
  Company Number: None

PATIENT
  Sex: Male
  Weight: 76.4 kg

DRUGS (4)
  1. METHOTREXATE [Suspect]
     Dosage: 50 MG
  2. VINCRISTINE SULFATE [Suspect]
     Dosage: 2 MG
  3. DEXAMETHASONE [Suspect]
     Dosage: 50 MG
  4. MERCAPTOPURINE [Suspect]
     Dosage: 1150 MG

REACTIONS (4)
  - LEUKAEMIA RECURRENT [None]
  - NEUTROPENIA [None]
  - ACUTE LYMPHOCYTIC LEUKAEMIA [None]
  - PYREXIA [None]
